FAERS Safety Report 25813187 (Version 1)
Quarter: 2025Q3

REPORT INFORMATION
  Report Type: Spontaneous
  Country: EU (occurrence: EU)
  Receive Date: 20250917
  Receipt Date: 20250917
  Transmission Date: 20251020
  Serious: Yes (Other)
  Sender: PFIZER
  Company Number: EU-PFIZER INC-PV202500110351

PATIENT
  Age: 63 Year
  Sex: Female
  Weight: 57 kg

DRUGS (10)
  1. TUKYSA [Suspect]
     Active Substance: TUCATINIB
     Indication: Breast cancer metastatic
     Dosage: 300 MG, 2X/DAY (1-2 CYCLE 150MG 2X2 TABLETS) (OPTIMAL DOSE)
     Route: 048
     Dates: start: 20240320
  2. TUKYSA [Suspect]
     Active Substance: TUCATINIB
     Dosage: 150 MG, 2X/DAY (3 CYCLE-2X1 TABLET)
     Route: 048
     Dates: end: 20240522
  3. TUKYSA [Suspect]
     Active Substance: TUCATINIB
     Dosage: 1 DF, DAILY (4-7 CYCLE-1 TABLET DAILY)
     Route: 048
     Dates: start: 20240618, end: 20240821
  4. TUKYSA [Suspect]
     Active Substance: TUCATINIB
     Route: 048
     Dates: start: 20240917, end: 20241119
  5. CAPECITABINE [Concomitant]
     Active Substance: CAPECITABINE
     Indication: HER2 positive breast cancer
     Dosage: 1500 MG, 2X/DAY (500 MG 2X 3 TABLETS)
     Route: 048
     Dates: start: 20240320
  6. CAPECITABINE [Concomitant]
     Active Substance: CAPECITABINE
     Dosage: 1000 MG, 2X/DAY (SECOND CYCLE 2X2 TABLETS)
  7. CAPECITABINE [Concomitant]
     Active Substance: CAPECITABINE
     Dosage: 500 MG, 2X/DAY (THIRD CYCLE)
     Dates: end: 20240522
  8. CAPECITABINE [Concomitant]
     Active Substance: CAPECITABINE
     Dates: start: 20240618, end: 20240821
  9. CAPECITABINE [Concomitant]
     Active Substance: CAPECITABINE
     Dates: start: 20240917, end: 20241119
  10. TRASTUZUMAB [Concomitant]
     Active Substance: TRASTUZUMAB
     Indication: HER2 positive breast cancer
     Route: 042
     Dates: start: 20240320, end: 20241109

REACTIONS (7)
  - Breast cancer metastatic [Not Recovered/Not Resolved]
  - Malignant neoplasm progression [Not Recovered/Not Resolved]
  - Metastases to liver [Not Recovered/Not Resolved]
  - Metastases to adrenals [Not Recovered/Not Resolved]
  - Skin toxicity [Recovering/Resolving]
  - Palmar-plantar erythrodysaesthesia syndrome [Recovering/Resolving]
  - Hypoaesthesia [Recovering/Resolving]

NARRATIVE: CASE EVENT DATE: 20240320
